FAERS Safety Report 8822886 (Version 1)
Quarter: 2012Q4

REPORT INFORMATION
  Report Type: 
  Country: CN (occurrence: CN)
  Receive Date: 20121003
  Receipt Date: 20121003
  Transmission Date: 20130627
  Serious: Yes (Hospitalization)
  Sender: FDA-Public Use
  Company Number: CN-JNJFOC-20120912592

PATIENT
  Age: 3 Year
  Sex: Female

DRUGS (2)
  1. PARACETAMOL [Suspect]
     Indication: PYREXIA
     Dosage: 3.5 mL
     Route: 048
     Dates: start: 20091125, end: 20091126
  2. UNSPECIFIED INGREDIENT [Suspect]
     Indication: PYREXIA
     Route: 048
     Dates: start: 20091125

REACTIONS (6)
  - Eye swelling [Recovered/Resolved]
  - Overdose [Recovered/Resolved]
  - Drug hypersensitivity [Recovered/Resolved]
  - Liver function test abnormal [Recovered/Resolved]
  - Renal function test abnormal [Recovered/Resolved]
  - Pyrexia [Recovered/Resolved]
